FAERS Safety Report 4805710-X (Version None)
Quarter: 2005Q4

REPORT INFORMATION
  Report Type: 
  Country: None (occurrence: None)
  Receive Date: 20051021
  Receipt Date: 20051010
  Transmission Date: 20060501
  Serious: Yes (Hospitalization)
  Sender: FDA-Public Use
  Company Number: US-JNJFOC-20051002208

PATIENT
  Sex: Male
  Weight: 77.11 kg

DRUGS (6)
  1. REMICADE [Suspect]
     Route: 042
  2. REMICADE [Suspect]
     Route: 042
  3. REMICADE [Suspect]
     Route: 042
  4. REMICADE [Suspect]
     Indication: CROHN'S DISEASE
     Route: 042
  5. PREDNISONE TAB [Concomitant]
     Route: 048
  6. PENTASA [Concomitant]
     Dosage: 250 MG, 5 TABLETS TWICE DAILY

REACTIONS (7)
  - ADVERSE DRUG REACTION [None]
  - HEMIPARESIS [None]
  - INTESTINAL RESECTION [None]
  - JOINT STIFFNESS [None]
  - MUSCLE SPASMS [None]
  - MYALGIA [None]
  - PAIN [None]
